FAERS Safety Report 14626956 (Version 2)
Quarter: 2018Q2

REPORT INFORMATION
  Report Type: Report from Study
  Country: US (occurrence: US)
  Receive Date: 20180312
  Receipt Date: 20180416
  Transmission Date: 20180711
  Serious: Yes (Other)
  Sender: FDA-Public Use
  Company Number: US-ASTELLAS-2018US012498

PATIENT
  Age: 68 Year

DRUGS (3)
  1. BEVACIZUMAB. [Suspect]
     Active Substance: BEVACIZUMAB
     Indication: BRAIN NEOPLASM MALIGNANT
     Route: 042
     Dates: start: 20101214
  2. BEVACIZUMAB. [Suspect]
     Active Substance: BEVACIZUMAB
     Indication: BRAIN NEOPLASM MALIGNANT
  3. ERLOTINIB [Suspect]
     Active Substance: ERLOTINIB
     Indication: BRAIN NEOPLASM MALIGNANT
     Dosage: UNK, ONCE DAILY
     Route: 048
     Dates: start: 20101214

REACTIONS (4)
  - Wound dehiscence [Recovered/Resolved]
  - Thrombosis [Not Recovered/Not Resolved]
  - Embolism [Not Recovered/Not Resolved]
  - Blood creatinine [Recovered/Resolved]

NARRATIVE: CASE EVENT DATE: 20101011
